FAERS Safety Report 5760384-9 (Version None)
Quarter: 2008Q2

REPORT INFORMATION
  Report Type: 
  Country: None (occurrence: None)
  Receive Date: 20080605
  Receipt Date: 20080526
  Transmission Date: 20081010
  Serious: Yes (Hospitalization)
  Sender: FDA-Public Use
  Company Number: JP-PFIZER INC-2008030932

PATIENT
  Sex: Female

DRUGS (2)
  1. SOLU-CORTEF [Suspect]
     Indication: ASTHMA
     Dosage: DAILY DOSE:100MG
     Route: 042
     Dates: start: 20080324, end: 20080325
  2. NEOPHYLLIN [Concomitant]
     Route: 042
     Dates: start: 20080324, end: 20080325

REACTIONS (1)
  - ASTHMA [None]
